FAERS Safety Report 9752826 (Version 1)
Quarter: 2013Q4

REPORT INFORMATION
  Report Type: Spontaneous
  Country: US (occurrence: US)
  Receive Date: 20131213
  Receipt Date: 20131213
  Transmission Date: 20140711
  Serious: No
  Sender: FDA-Public Use
  Company Number: US-VIIV HEALTHCARE LIMITED-A1026341A

PATIENT
  Sex: Male

DRUGS (1)
  1. LEXIVA [Suspect]
     Indication: PRODUCT USED FOR UNKNOWN INDICATION
     Dosage: 700MG TWICE PER DAY
     Route: 065

REACTIONS (1)
  - Facial wasting [Unknown]
